FAERS Safety Report 4930617-7 (Version None)
Quarter: 2006Q1

REPORT INFORMATION
  Report Type: 
  Country: None (occurrence: None)
  Receive Date: 20060302
  Receipt Date: 20060201
  Transmission Date: 20060701
  Serious: Yes (Disabling, Other)
  Sender: FDA-Public Use
  Company Number: US-MERCK-0602USA00281

PATIENT
  Age: 55 Year
  Sex: Female
  Weight: 82 kg

DRUGS (4)
  1. ST. JOSEPH ADULT CHEWABLE ASPIRIN [Concomitant]
     Route: 048
  2. VIOXX [Suspect]
     Indication: ARTHRITIS
     Route: 048
     Dates: start: 20010101, end: 20040101
  3. VIOXX [Suspect]
     Route: 048
     Dates: start: 20010101, end: 20040101
  4. ZOCOR [Concomitant]
     Route: 048

REACTIONS (6)
  - CEREBROVASCULAR ACCIDENT [None]
  - CEREBROVASCULAR DISORDER [None]
  - CHEST PAIN [None]
  - GASTRIC DISORDER [None]
  - HEADACHE [None]
  - TRANSIENT ISCHAEMIC ATTACK [None]
